FAERS Safety Report 5621717-7 (Version None)
Quarter: 2008Q1

REPORT INFORMATION
  Report Type: 
  Country: None (occurrence: None)
  Receive Date: 20080211
  Receipt Date: 20080205
  Transmission Date: 20080703
  Serious: Yes (Other)
  Sender: FDA-Public Use
  Company Number: PHHY2008JP01351

PATIENT
  Sex: Female

DRUGS (2)
  1. ZOMETA [Suspect]
     Indication: METASTASES TO BONE
     Dosage: 4 MG DAILY
     Dates: start: 20061001
  2. AREDIA [Suspect]
     Indication: METASTASES TO BONE
     Dates: end: 20061001

REACTIONS (1)
  - OSTEONECROSIS [None]
